FAERS Safety Report 4693562-0 (Version None)
Quarter: 2005Q2

REPORT INFORMATION
  Report Type: 
  Country: None (occurrence: None)
  Receive Date: 20050613
  Receipt Date: 20050301
  Transmission Date: 20051028
  Serious: No
  Sender: FDA-Public Use
  Company Number: 2004-00791

PATIENT
  Age: 73 Year
  Sex: Female

DRUGS (3)
  1. VELCADE [Suspect]
     Indication: MULTIPLE MYELOMA
     Dosage: 1.80 MG, IV BOLUS;  1.40 MG, IV BOLUS
     Route: 040
     Dates: start: 20040308, end: 20040426
  2. VELCADE [Suspect]
     Indication: MULTIPLE MYELOMA
     Dosage: 1.80 MG, IV BOLUS;  1.40 MG, IV BOLUS
     Route: 040
     Dates: start: 20040426, end: 20040730
  3. ZOMETA [Concomitant]

REACTIONS (1)
  - NEUROPATHY PERIPHERAL [None]
